FAERS Safety Report 7778564-X (Version None)
Quarter: 2011Q3

REPORT INFORMATION
  Report Type: 
  Country: None (occurrence: None)
  Receive Date: 20110926
  Receipt Date: 20110914
  Transmission Date: 20111222
  Serious: Yes (Hospitalization)
  Sender: FDA-Public Use
  Company Number: US-BAYER-2011-027880

PATIENT
  Age: 42 Year
  Sex: Female
  Weight: 68 kg

DRUGS (10)
  1. DROSPIRENONE AND ETHINYL ESTRADIOL [Suspect]
     Indication: ACNE
  2. BUPROPION [Concomitant]
     Indication: DEPRESSION
  3. LEVOXYL [Concomitant]
     Indication: HYPOTHYROIDISM
     Dosage: UNK
     Dates: start: 20060901
  4. LEXAPRO [Concomitant]
     Indication: CHEMICAL INJURY
     Dosage: 20 MG, UNK
     Route: 048
     Dates: start: 20030201
  5. WELLBUTRIN [Concomitant]
  6. DROSPIRENONE AND ETHINYL ESTRADIOL [Suspect]
     Indication: CONTRACEPTION
     Dosage: UNK
     Route: 048
     Dates: start: 20090201, end: 20090701
  7. MINOCYCLINE HCL [Concomitant]
     Dosage: 75 MG, UNK
     Route: 048
     Dates: start: 20080728
  8. LEXAPRO [Concomitant]
     Indication: DEPRESSION
  9. BUPROPION [Concomitant]
     Indication: CHEMICAL INJURY
     Dosage: 300 MG, UNK
     Route: 048
     Dates: start: 20080728
  10. SYNTHROID [Concomitant]

REACTIONS (5)
  - CHEST PAIN [None]
  - EMOTIONAL DISTRESS [None]
  - DYSPNOEA [None]
  - PULMONARY EMBOLISM [None]
  - MENTAL DISORDER [None]
